FAERS Safety Report 4854365-7 (Version None)
Quarter: 2005Q4

REPORT INFORMATION
  Report Type: 
  Country: None (occurrence: None)
  Receive Date: 20051213
  Receipt Date: 20051213
  Transmission Date: 20060501
  Serious: Yes (Hospitalization, Other)
  Sender: FDA-Public Use
  Company Number: None

PATIENT
  Age: 16 Year
  Sex: Female

DRUGS (1)
  1. CORICIDIN COUGH + COLD TABLETS [Suspect]
     Indication: OVERDOSE
     Dosage: 16 TABS ORAL
     Route: 048
     Dates: start: 20051126, end: 20051126

REACTIONS (11)
  - CONVULSION [None]
  - DRUG ABUSER [None]
  - EYE DISORDER [None]
  - FATIGUE [None]
  - LOSS OF CONSCIOUSNESS [None]
  - MOANING [None]
  - MUSCLE INJURY [None]
  - MUSCULOSKELETAL STIFFNESS [None]
  - OVERDOSE [None]
  - TREMOR [None]
  - VOMITING [None]
